FAERS Safety Report 10200401 (Version 1)
Quarter: 2014Q2

REPORT INFORMATION
  Report Type: Spontaneous
  Country: DE (occurrence: DE)
  Receive Date: 20140528
  Receipt Date: 20140528
  Transmission Date: 20141212
  Serious: Yes (Other)
  Sender: FDA-Public Use
  Company Number: DE-ROCHE-1408161

PATIENT
  Age: 59 Year
  Sex: Female
  Weight: 90 kg

DRUGS (3)
  1. KADCYLA [Suspect]
     Indication: HER-2 POSITIVE BREAST CANCER
     Route: 042
     Dates: start: 20140109, end: 20140402
  2. XGEVA [Concomitant]
     Indication: BREAST CANCER METASTATIC
     Route: 058
     Dates: start: 20140430
  3. NAVELBINE [Concomitant]
     Indication: BREAST CANCER METASTATIC
     Route: 042
     Dates: start: 20131119, end: 20140409

REACTIONS (3)
  - Rash maculo-papular [Recovered/Resolved]
  - Vasculitis [Recovered/Resolved]
  - Systemic lupus erythematosus [Recovered/Resolved]
